FAERS Safety Report 18513812 (Version 2)
Quarter: 2022Q1

REPORT INFORMATION
  Report Type: Other
  Country: None (occurrence: US)
  Receive Date: 20201117
  Receipt Date: 20220331
  Transmission Date: 20220423
  Serious: Yes (Life-Threatening)
  Sender: FDA-Public Use
  Company Number: US-ALSI-202000473

PATIENT
  Age: 74 Year
  Sex: Female

DRUGS (1)
  1. CARBON DIOXIDE [Suspect]
     Active Substance: CARBON DIOXIDE
     Indication: Vessel harvesting
     Route: 042

REACTIONS (1)
  - Air embolism [Recovered/Resolved]
